FAERS Safety Report 14007146 (Version 1)
Quarter: 2017Q3

REPORT INFORMATION
  Report Type: Report from Study
  Country: US (occurrence: US)
  Receive Date: 20170925
  Receipt Date: 20170925
  Transmission Date: 20171128
  Serious: No
  Sender: FDA-Public Use
  Company Number: US-AMGEN-USASL2017144238

PATIENT
  Sex: Female

DRUGS (1)
  1. ENBREL [Suspect]
     Active Substance: ETANERCEPT
     Indication: PRODUCT USED FOR UNKNOWN INDICATION
     Dosage: UNK
     Route: 065

REACTIONS (5)
  - Injection site pain [Unknown]
  - Nasopharyngitis [Unknown]
  - Unevaluable event [Unknown]
  - Saliva altered [Unknown]
  - Swelling face [Unknown]

NARRATIVE: CASE EVENT DATE: 2016
